FAERS Safety Report 5893101-2 (Version None)
Quarter: 2008Q3

REPORT INFORMATION
  Report Type: 
  Country: None (occurrence: None)
  Receive Date: 20080919
  Receipt Date: 20080908
  Transmission Date: 20090109
  Serious: Yes (Hospitalization)
  Sender: FDA-Public Use
  Company Number: 96903

PATIENT
  Age: 37 Year
  Sex: Female

DRUGS (1)
  1. IBUPROFEN TABLETS [Suspect]
     Indication: ANALGESIA
     Dosage: 400MG/ONCE/ORAL
     Route: 048
     Dates: start: 20080629, end: 20080629

REACTIONS (5)
  - BLISTER [None]
  - DYSPNOEA [None]
  - HYPERSENSITIVITY [None]
  - LIP SWELLING [None]
  - PRURITUS [None]
